FAERS Safety Report 4325895-1 (Version None)
Quarter: 2004Q1

REPORT INFORMATION
  Report Type: 
  Country: None (occurrence: None)
  Receive Date: 20040324
  Receipt Date: 20040318
  Transmission Date: 20041129
  Serious: Yes (Death, Hospitalization)
  Sender: FDA-Public Use
  Company Number: STA-AE-04-007

PATIENT
  Age: 76 Year
  Sex: Male

DRUGS (2)
  1. CIMETIDINE [Suspect]
     Indication: HELICOBACTER INFECTION
     Dosage: 1 TABLET ONE TIME, ORAL
     Route: 048
     Dates: start: 20040114, end: 20040114
  2. COUMADIN [Concomitant]

REACTIONS (2)
  - CEREBRAL HAEMORRHAGE [None]
  - DRUG INTERACTION [None]
